FAERS Safety Report 5000721-6 (Version None)
Quarter: 2006Q2

REPORT INFORMATION
  Report Type: 
  Country: None (occurrence: None)
  Receive Date: 20060512
  Receipt Date: 20060426
  Transmission Date: 20061013
  Serious: Yes (Death)
  Sender: FDA-Public Use
  Company Number: PHBS2006JP06244

PATIENT
  Age: 72 Year
  Sex: Male

DRUGS (2)
  1. CYCLOSPORINE [Suspect]
     Indication: INTERSTITIAL LUNG DISEASE
     Route: 065
  2. STEROIDS NOS [Concomitant]
     Dosage: PULSE THERAPY

REACTIONS (4)
  - AORTIC THROMBOSIS [None]
  - PULMONARY NECROSIS [None]
  - RESPIRATORY FAILURE [None]
  - ZYGOMYCOSIS [None]
